FAERS Safety Report 7284199-8 (Version None)
Quarter: 2011Q1

REPORT INFORMATION
  Report Type: 
  Country: None (occurrence: None)
  Receive Date: 20110209
  Receipt Date: 20110204
  Transmission Date: 20110831
  Serious: No
  Sender: FDA-Public Use
  Company Number: US-PFIZER INC-2011027156

PATIENT
  Sex: Female

DRUGS (5)
  1. XANAX [Suspect]
     Dosage: UNK
  2. XANAX XR [Suspect]
     Route: 048
  3. ZOLOFT [Suspect]
  4. CELEXA [Suspect]
  5. KLONOPIN [Concomitant]

REACTIONS (5)
  - WITHDRAWAL SYNDROME [None]
  - CIRCUMSTANCE OR INFORMATION CAPABLE OF LEADING TO MEDICATION ERROR [None]
  - MALAISE [None]
  - ANXIETY [None]
  - DRUG INEFFECTIVE [None]
